FAERS Safety Report 20834883 (Version 1)
Quarter: 2022Q2

REPORT INFORMATION
  Report Type: Spontaneous
  Country: CN (occurrence: CN)
  Receive Date: 20220516
  Receipt Date: 20220516
  Transmission Date: 20220720
  Serious: Yes (Other)
  Sender: FDA-Public Use
  Company Number: CN-LUPIN PHARMACEUTICALS INC.-2022-07119

PATIENT
  Age: 40 Year
  Sex: Male

DRUGS (1)
  1. CEFTRIAXONE [Suspect]
     Active Substance: CEFTRIAXONE
     Indication: Primary syphilis
     Dosage: UNK
     Route: 065

REACTIONS (3)
  - Acute generalised exanthematous pustulosis [Unknown]
  - Pustular psoriasis [Unknown]
  - Off label use [Unknown]
